FAERS Safety Report 6343176-1 (Version None)
Quarter: 2009Q3

REPORT INFORMATION
  Report Type: 
  Country: None (occurrence: None)
  Receive Date: 20090903
  Receipt Date: 20090824
  Transmission Date: 20100115
  Serious: Yes (Hospitalization)
  Sender: FDA-Public Use
  Company Number: GP-09-08-0022

PATIENT
  Age: 51 Year
  Sex: Male

DRUGS (6)
  1. METFORMIN 850 MG TABLETS (UNK, UNK) [Suspect]
     Indication: DIABETES MELLITUS
     Dosage: 850 MG DAILY
  2. INSULIN [Concomitant]
  3. AMLODIPINE BESYLATE [Concomitant]
  4. ASPIRIN [Concomitant]
  5. WATER-SOLUBLE VITAMIN COMPLEX [Concomitant]
  6. ASPIRIN [Concomitant]

REACTIONS (2)
  - CONTRAINDICATION TO MEDICAL TREATMENT [None]
  - ENCEPHALOPATHY [None]
